FAERS Safety Report 16571652 (Version 2)
Quarter: 2021Q2

REPORT INFORMATION
  Report Type: Spontaneous
  Country: US (occurrence: US)
  Receive Date: 20190715
  Receipt Date: 20210618
  Transmission Date: 20210716
  Serious: Yes (Other)
  Sender: FDA-Public Use
  Company Number: US-MYLANLABS-2019M1065891

PATIENT
  Age: 62 Year
  Sex: Female

DRUGS (6)
  1. ACICLOVIR [Suspect]
     Active Substance: ACYCLOVIR
     Dosage: 800 MILLIGRAM, TID 3 TIMES A DAY
     Route: 048
  2. GANCICLOVIR. [Suspect]
     Active Substance: GANCICLOVIR
     Dosage: UNK UNK, BID
     Route: 061
  3. GANCICLOVIR. [Suspect]
     Active Substance: GANCICLOVIR
     Indication: OPHTHALMIC HERPES SIMPLEX
     Dosage: 5 TIMES A DAY
     Route: 061
  4. FAMCICLOVIR. [Suspect]
     Active Substance: FAMCICLOVIR
     Indication: OPHTHALMIC HERPES SIMPLEX
     Dosage: 250 MILLIGRAM, TID3 TIMES A DAY
     Route: 065
  5. ACICLOVIR [Suspect]
     Active Substance: ACYCLOVIR
     Indication: OPHTHALMIC HERPES SIMPLEX
     Dosage: 800 MILLIGRAM, BID
     Route: 048
  6. ACICLOVIR [Suspect]
     Active Substance: ACYCLOVIR
     Dosage: 800 MILLIGRAM 5 TIMES A DAY
     Route: 048

REACTIONS (3)
  - Drug ineffective [Unknown]
  - Headache [Recovered/Resolved]
  - Tremor [Recovered/Resolved]
